FAERS Safety Report 24750423 (Version 4)
Quarter: 2025Q1

REPORT INFORMATION
  Report Type: Report from Study
  Country: US (occurrence: US)
  Receive Date: 20241218
  Receipt Date: 20250124
  Transmission Date: 20250409
  Serious: Yes (Death, Hospitalization)
  Sender: EISAI
  Company Number: US-Eisai-EC-2024-180167

PATIENT
  Age: 77 Year
  Sex: Female
  Weight: 88 kg

DRUGS (2)
  1. LENVIMA [Suspect]
     Active Substance: LENVATINIB
     Indication: Endometrial cancer
     Route: 048
     Dates: start: 20241127, end: 202412
  2. LENVIMA [Suspect]
     Active Substance: LENVATINIB
     Route: 048
     Dates: start: 202412

REACTIONS (7)
  - Death [Fatal]
  - Headache [Not Recovered/Not Resolved]
  - Rectal haemorrhage [Recovered/Resolved]
  - Constipation [Recovering/Resolving]
  - Bronchitis [Recovering/Resolving]
  - Contusion [Recovering/Resolving]
  - Asthenia [Recovering/Resolving]

NARRATIVE: CASE EVENT DATE: 20240101
